FAERS Safety Report 8033011-8 (Version None)
Quarter: 2012Q1

REPORT INFORMATION
  Report Type: 
  Country: None (occurrence: None)
  Receive Date: 20120110
  Receipt Date: 20120105
  Transmission Date: 20120608
  Serious: Yes (Other)
  Sender: FDA-Public Use
  Company Number: DE-JNJFOC-20120101383

PATIENT
  Age: 83 Year
  Sex: Female

DRUGS (7)
  1. LEVOFLOXACIN [Suspect]
     Indication: ERYSIPELAS
     Route: 048
     Dates: start: 20111129, end: 20111203
  2. LEVOFLOXACIN [Suspect]
     Indication: PNEUMONIA
     Route: 048
     Dates: start: 20111129, end: 20111203
  3. LEVOFLOXACIN [Suspect]
     Route: 048
     Dates: start: 20111206, end: 20111208
  4. LEVOFLOXACIN [Suspect]
     Indication: URINARY TRACT INFECTION
     Route: 048
     Dates: start: 20111129, end: 20111203
  5. LEVOFLOXACIN [Suspect]
     Route: 048
     Dates: start: 20111206, end: 20111208
  6. LEVOFLOXACIN [Suspect]
     Route: 048
     Dates: start: 20111206, end: 20111208
  7. PENICILLIN [Concomitant]
     Indication: ERYSIPELAS
     Route: 042
     Dates: start: 20111129, end: 20111129

REACTIONS (3)
  - SENSATION OF HEAVINESS [None]
  - FATIGUE [None]
  - EXTRAPYRAMIDAL DISORDER [None]
